FAERS Safety Report 19844837 (Version 1)
Quarter: 2021Q3

REPORT INFORMATION
  Report Type: Spontaneous
  Country: JP (occurrence: JP)
  Receive Date: 20210917
  Receipt Date: 20210917
  Transmission Date: 20211014
  Serious: Yes (Other)
  Sender: FDA-Public Use
  Company Number: JP-SA-2021SA301492

PATIENT
  Age: 70 Year
  Sex: Female

DRUGS (1)
  1. MABCAMPATH [Suspect]
     Active Substance: ALEMTUZUMAB
     Indication: T-CELL PROLYMPHOCYTIC LEUKAEMIA
     Route: 041

REACTIONS (2)
  - Cytomegalovirus infection [Recovering/Resolving]
  - Neutrophil count decreased [Recovering/Resolving]
